FAERS Safety Report 6473267-6 (Version None)
Quarter: 2009Q4

REPORT INFORMATION
  Report Type: 
  Country: None (occurrence: None)
  Receive Date: 20091204
  Receipt Date: 20080905
  Transmission Date: 20100525
  Serious: Yes (Other)
  Sender: FDA-Public Use
  Company Number: US-ELI_LILLY_AND_COMPANY-US200809001278

PATIENT
  Sex: Female

DRUGS (6)
  1. CYMBALTA [Suspect]
     Indication: MAJOR DEPRESSION
     Dosage: 60 MG, DAILY (1/D)
     Dates: start: 20050101
  2. CYMBALTA [Suspect]
     Dosage: 120 MG, DAILY (1/D)
  3. VALIUM [Concomitant]
  4. TRAZODONE HCL [Concomitant]
  5. PANCREATIC ENZYMES [Concomitant]
  6. PRILOSEC [Concomitant]

REACTIONS (6)
  - APHAGIA [None]
  - CONDITION AGGRAVATED [None]
  - DRUG INEFFECTIVE [None]
  - MALAISE [None]
  - PANCREATITIS [None]
  - PRODUCT QUALITY ISSUE [None]
